FAERS Safety Report 9905383 (Version 1)
Quarter: 2014Q1

REPORT INFORMATION
  Report Type: Report from Study
  Country: BR (occurrence: BR)
  Receive Date: 20140218
  Receipt Date: 20140218
  Transmission Date: 20141002
  Serious: Yes (Death, Hospitalization, Other)
  Sender: FDA-Public Use
  Company Number: BR-BAYER-2014-021057

PATIENT
  Age: 72 Year
  Sex: Male

DRUGS (3)
  1. NEXAVAR [Suspect]
     Indication: HEPATIC CANCER
     Dosage: 4 DF, QD
     Route: 048
  2. NEXAVAR [Suspect]
     Indication: HEPATIC CANCER
     Dosage: 3 DF, QD
     Route: 048
  3. ALDACTONE A [Concomitant]
     Indication: ASCITES
     Dosage: UNK
     Route: 048

REACTIONS (7)
  - Cardiac disorder [Fatal]
  - Diabetes mellitus [Fatal]
  - Hepatic cancer [Fatal]
  - Coma [Not Recovered/Not Resolved]
  - Confusional state [Unknown]
  - Ascites [Not Recovered/Not Resolved]
  - Rash macular [Not Recovered/Not Resolved]
